FAERS Safety Report 8648823 (Version 3)
Quarter: 2013Q1

REPORT INFORMATION
  Report Type: Report from Study
  Country: FR (occurrence: FR)
  Receive Date: 20120704
  Receipt Date: 20130325
  Transmission Date: 20140127
  Serious: Yes (Death, Life-Threatening)
  Sender: FDA-Public Use
  Company Number: FR-BIOGENIDEC-2012BI022649

PATIENT
  Age: 27 Year
  Sex: Female

DRUGS (6)
  1. TYSABRI [Suspect]
     Indication: MULTIPLE SCLEROSIS
     Route: 042
     Dates: start: 20071004, end: 20101124
  2. BACLOFEN [Concomitant]
     Indication: MUSCLE SPASTICITY
     Route: 048
     Dates: start: 200801, end: 20111216
  3. PAROXETINE [Concomitant]
     Route: 048
     Dates: start: 200801, end: 20111216
  4. DOMPERIDONE [Concomitant]
     Dates: end: 20111216
  5. PRAZEPAM [Concomitant]
     Dates: end: 20111216
  6. NUTRITION [Concomitant]
     Dates: start: 201011, end: 20111216

REACTIONS (1)
  - Pneumonia aspiration [Fatal]
